FAERS Safety Report 7245380-7 (Version None)
Quarter: 2011Q1

REPORT INFORMATION
  Report Type: 
  Country: None (occurrence: None)
  Receive Date: 20110126
  Receipt Date: 20110121
  Transmission Date: 20110831
  Serious: Yes (Life-Threatening)
  Sender: FDA-Public Use
  Company Number: US-ABBOTT-11P-163-0700208-00

PATIENT
  Sex: Female
  Weight: 44.038 kg

DRUGS (4)
  1. CELEXA [Concomitant]
     Indication: DEPRESSION
  2. PREDNISONE [Concomitant]
  3. HUMIRA [Suspect]
     Indication: CROHN'S DISEASE
     Dates: end: 20101001
  4. PREDNISONE [Concomitant]
     Indication: CROHN'S DISEASE
     Dates: start: 20110120

REACTIONS (4)
  - CROHN'S DISEASE [None]
  - ILEAL STENOSIS [None]
  - INTESTINAL PERFORATION [None]
  - SEPTIC SHOCK [None]
